FAERS Safety Report 10452444 (Version 1)
Quarter: 2014Q3

REPORT INFORMATION
  Report Type: Spontaneous
  Country: PT (occurrence: None)
  Receive Date: 20140911
  Receipt Date: 20140911
  Transmission Date: 20150326
  Serious: Yes (Hospitalization, Other)
  Sender: FDA-Public Use
  Company Number: PT-ZYDUS-004919

PATIENT
  Age: 53 Year
  Sex: Female

DRUGS (1)
  1. AMIODARONE [Suspect]
     Active Substance: AMIODARONE

REACTIONS (9)
  - Dehydration [None]
  - Leukocyturia [None]
  - Psychomotor hyperactivity [None]
  - Abdominal pain upper [None]
  - Atrial fibrillation [None]
  - Thyrotoxic crisis [None]
  - Pyrexia [None]
  - Restlessness [None]
  - International normalised ratio increased [None]
